FAERS Safety Report 10495629 (Version 1)
Quarter: 2014Q3

REPORT INFORMATION
  Report Type: Spontaneous
  Country: US (occurrence: None)
  Receive Date: 20140815
  Receipt Date: 20140815
  Transmission Date: 20150326
  Serious: Yes (Other)
  Sender: FDA-Public Use
  Company Number: ADR-2014-00405

PATIENT
  Age: 71 Year
  Sex: Male

DRUGS (2)
  1. MORPHINE (10MG/ML) [Suspect]
     Active Substance: MORPHINE
  2. BACLOFEN INTRATHECAL (540.0 MCG/ML) [Suspect]
     Active Substance: BACLOFEN
     Indication: PAIN

REACTIONS (5)
  - Pneumonia [None]
  - Asthenia [None]
  - Respiratory tract congestion [None]
  - Lethargy [None]
  - Respiratory disorder [None]
